FAERS Safety Report 7030036-6 (Version None)
Quarter: 2010Q4

REPORT INFORMATION
  Report Type: 
  Country: None (occurrence: None)
  Receive Date: 20101006
  Receipt Date: 20100927
  Transmission Date: 20110411
  Serious: Yes (Other)
  Sender: FDA-Public Use
  Company Number: US-JNJFOC-20100510572

PATIENT
  Sex: Female
  Weight: 90.95 kg

DRUGS (9)
  1. TYLENOL WARMING COUGH + SORE THROAT NIGHTTIME HONEY LEMON [Suspect]
     Indication: NASOPHARYNGITIS
     Route: 048
  2. SYNTHROID [Concomitant]
     Indication: HYPOTHYROIDISM
  3. SIMVASTATIN [Concomitant]
     Indication: BLOOD CHOLESTEROL INCREASED
  4. PROZAC [Concomitant]
     Indication: DEPRESSION
  5. METFORMIN [Concomitant]
     Indication: DIABETES MELLITUS
  6. GLIPIZIDE [Concomitant]
     Indication: DIABETES MELLITUS
  7. BYSTOLIC [Concomitant]
     Indication: HYPERTENSION
  8. BYSTOLIC [Concomitant]
     Indication: DYSPNOEA
  9. KLONOPIN [Concomitant]
     Indication: RESTLESS LEGS SYNDROME

REACTIONS (5)
  - FEELING JITTERY [None]
  - INSOMNIA [None]
  - MUSCLE SPASMS [None]
  - MUSCLE TWITCHING [None]
  - RESTLESSNESS [None]
